FAERS Safety Report 6181650-1 (Version None)
Quarter: 2009Q2

REPORT INFORMATION
  Report Type: 
  Country: None (occurrence: None)
  Receive Date: 20090506
  Receipt Date: 20090428
  Transmission Date: 20091009
  Serious: Yes (Congenital Anomaly)
  Sender: FDA-Public Use
  Company Number: A0782591A

PATIENT

DRUGS (1)
  1. PAXIL [Suspect]
     Indication: DEPRESSION

REACTIONS (10)
  - ASTHMA [None]
  - CARDIOMEGALY [None]
  - CONGENITAL AORTIC STENOSIS [None]
  - CONVULSION [None]
  - DRUG EXPOSURE DURING PREGNANCY [None]
  - MIGRAINE [None]
  - MITRAL VALVE INCOMPETENCE [None]
  - MULTIPLE CONGENITAL ABNORMALITIES [None]
  - PULMONARY VALVE STENOSIS [None]
  - RESPIRATORY DISTRESS [None]
